FAERS Safety Report 12712981 (Version 4)
Quarter: 2017Q1

REPORT INFORMATION
  Report Type: Report from Study
  Country: JP (occurrence: JP)
  Receive Date: 20160902
  Receipt Date: 20170301
  Transmission Date: 20170428
  Serious: Yes (Life-Threatening, Hospitalization)
  Sender: FDA-Public Use
  Company Number: JP-VIFOR (INTERNATIONAL) INC.-VIT-2016-04932

PATIENT
  Age: 55 Year
  Sex: Female
  Weight: 48.4 kg

DRUGS (16)
  1. VELPHORO [Suspect]
     Active Substance: FERRIC OXYHYDROXIDE
     Indication: HYPERPHOSPHATAEMIA
     Route: 048
     Dates: start: 20160423, end: 20160513
  2. TEPRENONE [Concomitant]
     Active Substance: TEPRENONE
     Route: 048
  3. CRESTOR [Concomitant]
     Active Substance: ROSUVASTATIN CALCIUM
     Route: 048
  4. THYRADIN S [Concomitant]
     Active Substance: LEVOTHYROXINE SODIUM
     Route: 048
  5. AROTINOLOL HYDROCHLORIDE [Concomitant]
     Active Substance: AROTINOLOL HYDROCHLORIDE
     Route: 048
  6. VELPHORO [Suspect]
     Active Substance: FERRIC OXYHYDROXIDE
     Route: 048
     Dates: start: 20160514, end: 20160823
  7. FOSRENOL [Concomitant]
     Active Substance: LANTHANUM CARBONATE
     Indication: HYPERPHOSPHATAEMIA
     Route: 048
     Dates: start: 20160108
  8. BAYASPIRIN [Concomitant]
     Active Substance: ASPIRIN
     Indication: SHUNT OCCLUSION
     Route: 048
  9. MIRCERA [Concomitant]
     Active Substance: METHOXY POLYETHYLENE GLYCOL-EPOETIN BETA
     Indication: PRODUCT USED FOR UNKNOWN INDICATION
  10. RALOXIFENE HYDROCHLORIDE. [Concomitant]
     Active Substance: RALOXIFENE HYDROCHLORIDE
     Route: 048
  11. OXAROL [Concomitant]
     Active Substance: MAXACALCITOL
     Route: 042
  12. REGPARA [Concomitant]
     Active Substance: CINACALCET HYDROCHLORIDE
     Route: 048
  13. ZETIA [Concomitant]
     Active Substance: EZETIMIBE
     Route: 048
  14. CALCIUM CARBONATE. [Concomitant]
     Active Substance: CALCIUM CARBONATE
     Indication: HYPOCALCAEMIA
     Route: 048
     Dates: start: 20160324
  15. KAYEXALATE [Concomitant]
     Active Substance: SODIUM POLYSTYRENE SULFONATE
     Dosage: AD LIBITUM
     Route: 048
  16. REGPARA [Concomitant]
     Active Substance: CINACALCET HYDROCHLORIDE
     Route: 048

REACTIONS (4)
  - Inflammation [Recovered/Resolved]
  - Abdominal pain [Recovered/Resolved]
  - Appendicitis [Recovered/Resolved]
  - Appendicectomy [Recovered/Resolved]

NARRATIVE: CASE EVENT DATE: 20160822
